FAERS Safety Report 6201119-5 (Version None)
Quarter: 2009Q2

REPORT INFORMATION
  Report Type: 
  Country: None (occurrence: None)
  Receive Date: 20090526
  Receipt Date: 20090518
  Transmission Date: 20091009
  Serious: Yes (Other)
  Sender: FDA-Public Use
  Company Number: ES-BAYER-200921069GPV

PATIENT
  Age: 29 Year
  Sex: Female

DRUGS (1)
  1. ACTIRA [Suspect]
     Indication: SINUSITIS
     Route: 048
     Dates: start: 20090212, end: 20090217

REACTIONS (3)
  - NIGHTMARE [None]
  - PARANOIA [None]
  - SOMNOLENCE [None]
